FAERS Safety Report 11400603 (Version 1)
Quarter: 2015Q3

REPORT INFORMATION
  Report Type: Spontaneous
  Country: US (occurrence: US)
  Receive Date: 20150820
  Receipt Date: 20150820
  Transmission Date: 20151125
  Serious: Yes (Other)
  Sender: FDA-Public Use
  Company Number: US-GLAXOSMITHKLINE-US2015118677

PATIENT
  Age: 50 Year
  Sex: Female

DRUGS (2)
  1. TANZEUM [Suspect]
     Active Substance: ALBIGLUTIDE
     Indication: TYPE 2 DIABETES MELLITUS
     Dosage: 30 MG, WE
     Route: 042
     Dates: start: 201506
  2. GLIMEPIRIDE. [Suspect]
     Active Substance: GLIMEPIRIDE
     Indication: DIABETES MELLITUS
     Dosage: 2 MG, 1D
     Route: 048

REACTIONS (5)
  - Drug ineffective [Not Recovered/Not Resolved]
  - Feeling cold [Not Recovered/Not Resolved]
  - Mental impairment [Recovered/Resolved]
  - Pruritus [Recovering/Resolving]
  - Confusional state [Recovered/Resolved]

NARRATIVE: CASE EVENT DATE: 201506
